FAERS Safety Report 8276859-7 (Version None)
Quarter: 2012Q2

REPORT INFORMATION
  Report Type: 
  Country: None (occurrence: None)
  Receive Date: 20120412
  Receipt Date: 20120405
  Transmission Date: 20120825
  Serious: Yes (Life-Threatening, Other)
  Sender: FDA-Public Use
  Company Number: JP-ALLERGAN-1116883US

PATIENT
  Age: 69 Year
  Sex: Female

DRUGS (2)
  1. LUMIGAN [Suspect]
     Indication: NORMAL TENSION GLAUCOMA
     Dosage: 1 GTT, QPM RIGHT EYE
     Route: 047
     Dates: start: 20110531
  2. LUMIGAN [Suspect]
     Dosage: 1 GTT, QPM LEFT EYE
     Route: 047
     Dates: start: 20110610

REACTIONS (2)
  - BRAIN NEOPLASM [None]
  - CONJUNCTIVAL HYPERAEMIA [None]
